FAERS Safety Report 16980182 (Version 1)
Quarter: 2019Q4

REPORT INFORMATION
  Report Type: Spontaneous
  Country: GB (occurrence: GB)
  Receive Date: 20191031
  Receipt Date: 20191031
  Transmission Date: 20200122
  Serious: Yes (Disabling)
  Sender: FDA-Public Use
  Company Number: GB-MYLANLABS-2019M1103379

PATIENT
  Age: 25 Year
  Sex: Female
  Weight: 67.1 kg

DRUGS (1)
  1. VENLAFAXINE [Suspect]
     Active Substance: VENLAFAXINE HYDROCHLORIDE
     Indication: ANXIETY
     Dosage: 225 MILLIGRAM
     Route: 048
     Dates: start: 20170301

REACTIONS (16)
  - Dysuria [Not Recovered/Not Resolved]
  - Balance disorder [Not Recovered/Not Resolved]
  - Mydriasis [Not Recovered/Not Resolved]
  - Muscle spasms [Not Recovered/Not Resolved]
  - Hot flush [Not Recovered/Not Resolved]
  - Fatigue [Not Recovered/Not Resolved]
  - Oropharyngeal pain [Recovered/Resolved with Sequelae]
  - Influenza [Unknown]
  - Dry mouth [Not Recovered/Not Resolved]
  - Confusional state [Not Recovered/Not Resolved]
  - Dizziness [Not Recovered/Not Resolved]
  - Insomnia [Recovered/Resolved with Sequelae]
  - Headache [Not Recovered/Not Resolved]
  - Bruxism [Not Recovered/Not Resolved]
  - Night sweats [Not Recovered/Not Resolved]
  - Tremor [Not Recovered/Not Resolved]
